FAERS Safety Report 13053193 (Version 7)
Quarter: 2017Q3

REPORT INFORMATION
  Report Type: Report from Study
  Country: KR (occurrence: KR)
  Receive Date: 20161222
  Receipt Date: 20170919
  Transmission Date: 20171127
  Serious: Yes (Hospitalization)
  Sender: FDA-Public Use
  Company Number: KR-ROCHE-1866408

PATIENT
  Age: 36 Year
  Sex: Female
  Weight: 50 kg

DRUGS (9)
  1. HYDROMORPHONE [Concomitant]
     Active Substance: HYDROMORPHONE
     Indication: BREAST PAIN
     Route: 065
     Dates: start: 20161121, end: 20161213
  2. CIA [Concomitant]
     Indication: BREAST PAIN
     Dosage: ACETAMINOPHEN 250MG/CODEINE PHOSPHATE 10MG/IBUPROFEN 200MG)
     Route: 065
     Dates: start: 20161121, end: 20161213
  3. MAGNESIUM OXIDE. [Concomitant]
     Active Substance: MAGNESIUM OXIDE
     Indication: CONSTIPATION
     Route: 065
     Dates: start: 20161121, end: 20161213
  4. SYNATURA [Concomitant]
     Indication: COUGH
     Route: 065
     Dates: start: 20161125, end: 20161201
  5. ATEZOLIZUMAB. [Suspect]
     Active Substance: ATEZOLIZUMAB
     Indication: HER-2 POSITIVE BREAST CANCER
     Dosage: THE MOST RECENT DOSE (1200 MG) OF ATEZOLIZUMAB WAS ON 25/NOV/2016
     Route: 042
     Dates: start: 20161125
  6. TRASTUZUMAB EMTANSINE [Suspect]
     Active Substance: ADO-TRASTUZUMAB EMTANSINE
     Indication: HER-2 POSITIVE BREAST CANCER
     Dosage: THE MOST RECENT DOSE OF TRASTUZUMAB EMTANSINE WAS 179.3 MG ON 25/NOV/2016.
     Route: 042
     Dates: start: 20161125
  7. AZITHROMYCIN ANHYDROUS. [Concomitant]
     Active Substance: AZITHROMYCIN ANHYDROUS
     Indication: PNEUMONIA
     Route: 065
     Dates: start: 20161207, end: 20161212
  8. CEFEPIME [Concomitant]
     Active Substance: CEFEPIME HYDROCHLORIDE
     Indication: PNEUMONIA
     Route: 065
     Dates: start: 20161207, end: 20161212
  9. CODEINE [Concomitant]
     Active Substance: CODEINE
     Indication: COUGH
     Route: 065
     Dates: start: 20161125, end: 20161201

REACTIONS (1)
  - Pyrexia [Recovered/Resolved]

NARRATIVE: CASE EVENT DATE: 20161206
